FAERS Safety Report 9968131 (Version 1)
Quarter: 2014Q1

REPORT INFORMATION
  Report Type: Report from Study
  Country: US (occurrence: US)
  Receive Date: 20140306
  Receipt Date: 20140306
  Transmission Date: 20141002
  Serious: Yes (Hospitalization)
  Sender: FDA-Public Use
  Company Number: US-ABBVIE-13P-163-1142406-00

PATIENT
  Age: 28 Year
  Sex: Male

DRUGS (7)
  1. HUMIRA [Suspect]
     Indication: CROHN^S DISEASE
     Dosage: CROHN^S STARTER KIT
     Dates: start: 201302, end: 201302
  2. HUMIRA [Suspect]
     Dates: start: 201303, end: 201303
  3. HUMIRA [Suspect]
     Dates: start: 201303, end: 201306
  4. METOPROLOL [Concomitant]
     Indication: PRODUCT USED FOR UNKNOWN INDICATION
  5. PROTONIX [Concomitant]
     Indication: PRODUCT USED FOR UNKNOWN INDICATION
  6. GABAPENTIN [Concomitant]
     Indication: PRODUCT USED FOR UNKNOWN INDICATION
  7. KETOROLAC [Concomitant]
     Indication: PRODUCT USED FOR UNKNOWN INDICATION

REACTIONS (2)
  - Staphylococcal infection [Recovered/Resolved]
  - Cellulitis [Recovered/Resolved]
